FAERS Safety Report 7679734-1 (Version None)
Quarter: 2011Q3

REPORT INFORMATION
  Report Type: 
  Country: None (occurrence: None)
  Receive Date: 20110812
  Receipt Date: 20110727
  Transmission Date: 20111222
  Serious: No
  Sender: FDA-Public Use
  Company Number: US-BAYER-2011-066379

PATIENT
  Age: 18 Year
  Sex: Female

DRUGS (2)
  1. CIPROFLOXACIN [Suspect]
     Indication: COLITIS
     Dosage: UNK
     Route: 048
     Dates: start: 20110726, end: 20110727
  2. SEMCOM [Concomitant]

REACTIONS (4)
  - HYPOAESTHESIA [None]
  - THROAT TIGHTNESS [None]
  - HEADACHE [None]
  - THROAT IRRITATION [None]
